FAERS Safety Report 17155559 (Version 1)
Quarter: 2019Q4

REPORT INFORMATION
  Report Type: Spontaneous
  Country: US (occurrence: US)
  Receive Date: 20191215
  Receipt Date: 20191215
  Transmission Date: 20200122
  Serious: No
  Sender: FDA-Public Use
  Company Number: US-ENDO PHARMACEUTICALS INC-2019-103382

PATIENT
  Age: 53 Year
  Sex: Male
  Weight: 90.7 kg

DRUGS (3)
  1. TRICOR                             /00090101/ [Concomitant]
     Active Substance: ADENOSINE
     Indication: BLOOD CHOLESTEROL INCREASED
  2. XIAFLEX [Suspect]
     Active Substance: COLLAGENASE CLOSTRIDIUM HISTOLYTICUM
     Dosage: UNK UNKNOWN, FIRST CYCLE; INJECTION TWO
     Route: 026
     Dates: start: 20190301
  3. XIAFLEX [Suspect]
     Active Substance: COLLAGENASE CLOSTRIDIUM HISTOLYTICUM
     Indication: PEYRONIE^S DISEASE
     Dosage: UNK UNKNOWN, FIRST CYCLE; INJECTION ONE
     Route: 026
     Dates: start: 20190226

REACTIONS (4)
  - Genital swelling [Recovered/Resolved]
  - Haematoma [Recovered/Resolved]
  - Genital contusion [Recovered/Resolved]
  - Nodule [Recovered/Resolved]

NARRATIVE: CASE EVENT DATE: 20190226
